FAERS Safety Report 23033828 (Version 5)
Quarter: 2024Q3

REPORT INFORMATION
  Report Type: Report from Study
  Country: CA (occurrence: CA)
  Receive Date: 20231005
  Receipt Date: 20240925
  Transmission Date: 20241016
  Serious: Yes (Hospitalization, Other)
  Sender: SANDOZ
  Company Number: CA-002147023-NVSC2022CA265992

PATIENT
  Sex: Female

DRUGS (1)
  1. HYRIMOZ [Suspect]
     Active Substance: ADALIMUMAB-ADAZ
     Indication: Crohn^s disease
     Dosage: 40 MG, QW, PRE-FILLED SYRINGE
     Route: 058
     Dates: start: 20220217

REACTIONS (13)
  - Diarrhoea [Recovering/Resolving]
  - Crohn^s disease [Unknown]
  - Cystitis [Recovering/Resolving]
  - Pyrexia [Recovering/Resolving]
  - Faecal calprotectin increased [Recovering/Resolving]
  - Drug level increased [Recovering/Resolving]
  - Anal haemorrhage [Unknown]
  - Anorectal discomfort [Unknown]
  - Influenza like illness [Unknown]
  - Malaise [Unknown]
  - Off label use [Unknown]
  - Product dose omission issue [Unknown]
  - Drug ineffective [Unknown]
